FAERS Safety Report 7761280-8 (Version None)
Quarter: 2011Q3

REPORT INFORMATION
  Report Type: 
  Country: None (occurrence: None)
  Receive Date: 20110920
  Receipt Date: 20110913
  Transmission Date: 20111222
  Serious: Yes (Life-Threatening, Other)
  Sender: FDA-Public Use
  Company Number: FR-JNJFOC-20110700231

PATIENT
  Age: 74 Year
  Sex: Male

DRUGS (9)
  1. COMPLEMENT CONTINUS [Concomitant]
     Route: 065
  2. AMOXICILLIN [Concomitant]
     Route: 065
     Dates: start: 20110201, end: 20110201
  3. ROVAMYCINE [Concomitant]
     Route: 065
     Dates: start: 20110401, end: 20110401
  4. RIFAMPICIN [Suspect]
     Indication: DEVICE RELATED INFECTION
     Route: 048
     Dates: start: 20110525, end: 20110531
  5. LEVOFLOXACIN [Suspect]
     Indication: DEVICE RELATED INFECTION
     Route: 048
     Dates: start: 20110525, end: 20110530
  6. PIPERACILLIN AND TAZOBACTAM [Concomitant]
     Indication: OSTEOMYELITIS
     Route: 065
     Dates: start: 20110519, end: 20110525
  7. ALLOPURINOL [Concomitant]
     Route: 065
  8. VANCOMYCIN [Concomitant]
     Indication: OSTEOMYELITIS
     Route: 065
     Dates: start: 20110519, end: 20110525
  9. APROVEL [Concomitant]
     Route: 065

REACTIONS (3)
  - INFLAMMATION [None]
  - RENAL FAILURE ACUTE [None]
  - TUBULOINTERSTITIAL NEPHRITIS [None]
